FAERS Safety Report 5763592-6 (Version None)
Quarter: 2008Q2

REPORT INFORMATION
  Report Type: 
  Country: None (occurrence: None)
  Receive Date: 20080610
  Receipt Date: 20080530
  Transmission Date: 20081010
  Serious: Yes (Other)
  Sender: FDA-Public Use
  Company Number: PHEH2008US04951

PATIENT

DRUGS (1)
  1. EXELON [Suspect]
     Dosage: 4.6 UNK, UNK
     Route: 062

REACTIONS (2)
  - LIP SWELLING [None]
  - SWOLLEN TONGUE [None]
